FAERS Safety Report 11355322 (Version 1)
Quarter: 2015Q3

REPORT INFORMATION
  Report Type: Spontaneous
  Country: US (occurrence: US)
  Receive Date: 20150807
  Receipt Date: 20150807
  Transmission Date: 20151125
  Serious: Yes (Death)
  Sender: FDA-Public Use
  Company Number: US-LUNDBECK-DKLU2002498

PATIENT
  Age: 46 Year
  Sex: Male

DRUGS (3)
  1. DEPAKOTE [Concomitant]
     Active Substance: DIVALPROEX SODIUM
     Indication: PRODUCT USED FOR UNKNOWN INDICATION
     Route: 065
  2. ONFI [Suspect]
     Active Substance: CLOBAZAM
     Indication: SEIZURE
  3. ONFI [Suspect]
     Active Substance: CLOBAZAM
     Indication: SEIZURE
     Route: 065
     Dates: start: 201310

REACTIONS (1)
  - Sudden death [Fatal]

NARRATIVE: CASE EVENT DATE: 20150719
